FAERS Safety Report 11372143 (Version 1)
Quarter: 2015Q3

REPORT INFORMATION
  Report Type: Report from Study
  Country: KE (occurrence: KE)
  Receive Date: 20150812
  Receipt Date: 20150812
  Transmission Date: 20151125
  Serious: Yes (Other)
  Sender: FDA-Public Use
  Company Number: KE-GILEAD-2015-0167435

PATIENT
  Age: 37 Year
  Sex: Female
  Weight: 71.5 kg

DRUGS (1)
  1. EMTRICITABINE/TENOFOVIR DISOPROXIL FUMARATE [Suspect]
     Active Substance: EMTRICITABINE\TENOFOVIR DISOPROXIL
     Indication: PROPHYLAXIS AGAINST HIV INFECTION
     Dosage: UNK
     Route: 048
     Dates: start: 20130905, end: 20140715

REACTIONS (1)
  - Abortion spontaneous [Recovered/Resolved]

NARRATIVE: CASE EVENT DATE: 20150227
